FAERS Safety Report 10429982 (Version 2)
Quarter: 2015Q1

REPORT INFORMATION
  Report Type: Spontaneous
  Country: US (occurrence: US)
  Receive Date: 20140904
  Receipt Date: 20150330
  Transmission Date: 20150720
  Serious: Yes (Other)
  Sender: FDA-Public Use
  Company Number: US-BAYER-2014-129114

PATIENT
  Age: 23 Year
  Sex: Female

DRUGS (1)
  1. MIRENA [Suspect]
     Active Substance: LEVONORGESTREL
     Indication: CONTRACEPTION
     Dosage: 20 MCG/24HR, CONT
     Route: 015
     Dates: start: 20130221, end: 20130710

REACTIONS (8)
  - Device breakage [None]
  - Abdominal pain lower [None]
  - Injury [None]
  - Pain [None]
  - Device difficult to use [None]
  - Complication of device removal [None]
  - Uterine perforation [None]
  - Genital haemorrhage [None]

NARRATIVE: CASE EVENT DATE: 201306
